FAERS Safety Report 5484468-8 (Version None)
Quarter: 2007Q4

REPORT INFORMATION
  Report Type: 
  Country: None (occurrence: None)
  Receive Date: 20071010
  Receipt Date: 20071001
  Transmission Date: 20080405
  Serious: Yes (Other)
  Sender: FDA-Public Use
  Company Number: 07H-163-0313274

PATIENT
  Age: 49 Year
  Sex: Male

DRUGS (7)
  1. ETOMIDATE INJECTION (ETOMIDATE INJECTION) [Suspect]
     Indication: INDUCTION OF ANAESTHESIA
     Dosage: 20 MG, INTRAVENOUS
     Route: 042
  2. SUCCINYLCHOLINE CHLORIDE [Concomitant]
  3. GLYCOPYROLATE (GLYCOPRONIUM BROMIDE) [Concomitant]
  4. LABETALOL HCL [Concomitant]
  5. GABAPENTIN [Concomitant]
  6. VALPROIC ACID [Concomitant]
  7. ARIPIPRAZOLE (ARIPRAZOLE) [Concomitant]

REACTIONS (1)
  - GRAND MAL CONVULSION [None]
